FAERS Safety Report 7813265-0 (Version None)
Quarter: 2011Q4

REPORT INFORMATION
  Report Type: 
  Country: None (occurrence: None)
  Receive Date: 20111013
  Receipt Date: 20110930
  Transmission Date: 20120403
  Serious: Yes (Hospitalization, Other)
  Sender: FDA-Public Use
  Company Number: US-ELI_LILLY_AND_COMPANY-US201110000940

PATIENT
  Sex: Female

DRUGS (19)
  1. FORTEO [Suspect]
     Indication: OSTEOPOROSIS
     Dosage: 20 MG, QD
     Dates: start: 20080101
  2. SYNTHROID [Concomitant]
     Dosage: 150 UG, QD
  3. VITAMIN B-12 [Concomitant]
     Dosage: 1.5 ML, WEEKLY (1/W)
  4. LOMOTIL [Concomitant]
     Dosage: 2 DF, QID
  5. PROMETHAZINE [Concomitant]
     Dosage: 25 MG, BID
  6. PHENERGAN HCL [Concomitant]
     Dosage: 25 MG, UNK
  7. LASIX [Concomitant]
     Dosage: 20 MG, PRN
  8. ZOLOFT [Concomitant]
     Dosage: 50 MG, BID
  9. OXYBUTIN [Concomitant]
     Dosage: 30 MG, QD
  10. DEPAKOTE [Concomitant]
     Dosage: 500 MG, BID
  11. ATENOLOL [Concomitant]
     Dosage: 25 MG, BID
  12. PREDNISONE [Concomitant]
     Dosage: 5 MG, BID
  13. COENZYME Q10 [Concomitant]
     Dosage: 50 MG, QD
  14. DEXLANSOPRAZOLE [Concomitant]
     Dosage: 60 MG, QD
  15. VITAMIN D [Concomitant]
     Dosage: UNK UNK, QD
  16. FORTEO [Suspect]
     Dosage: 20 MG, QD
     Dates: start: 20110101
  17. TEMAZEPAM [Concomitant]
     Dosage: 30 MG, QD
  18. NORCO [Concomitant]
     Dosage: 1 DF, TID
  19. POTASSIUM [Concomitant]
     Dosage: 550 MG, QD

REACTIONS (8)
  - JOINT DISLOCATION POSTOPERATIVE [None]
  - GAIT DISTURBANCE [None]
  - MOVEMENT DISORDER [None]
  - INCORRECT DRUG ADMINISTRATION DURATION [None]
  - KNEE ARTHROPLASTY [None]
  - INCORRECT STORAGE OF DRUG [None]
  - HIP ARTHROPLASTY [None]
  - PAIN [None]
